FAERS Safety Report 5193640-6 (Version None)
Quarter: 2006Q4

REPORT INFORMATION
  Report Type: 
  Country: None (occurrence: None)
  Receive Date: 20061228
  Receipt Date: 20061016
  Transmission Date: 20070319
  Serious: Yes (Death)
  Sender: FDA-Public Use
  Company Number: FR-BRISTOL-MYERS SQUIBB COMPANY-13544366

PATIENT
  Age: 35 Year
  Sex: Male
  Weight: 88 kg

DRUGS (2)
  1. ABILIFY [Suspect]
     Indication: SCHIZOPHRENIA
     Dosage: 10MG 2DEC05-16DEC05, 15MG 16DEC05-09MAR06, DECR. 10MG 9MAR06
     Route: 048
     Dates: start: 20051202
  2. ZOLOFT [Concomitant]
     Dosage: ZOLOFT 50MG 08/SEP/05 LAST VISIT ON 30/MAR/06
     Dates: start: 20050902

REACTIONS (1)
  - COMPLETED SUICIDE [None]
